FAERS Safety Report 9454386 (Version 2)
Quarter: 2013Q3

REPORT INFORMATION
  Report Type: Spontaneous
  Country: JP (occurrence: JP)
  Receive Date: 20130812
  Receipt Date: 20130910
  Transmission Date: 20140515
  Serious: Yes (Hospitalization)
  Sender: FDA-Public Use
  Company Number: JP-ELI_LILLY_AND_COMPANY-JP201307010714

PATIENT
  Age: 72 Year
  Sex: Female
  Weight: 45 kg

DRUGS (5)
  1. FORTEO [Suspect]
     Indication: OSTEOPOROSIS
     Dosage: 20 UG, QD
     Route: 058
     Dates: start: 20130306
  2. PREDONINE /00016201/ [Suspect]
     Indication: RHEUMATIC DISORDER
     Dosage: UNK
     Route: 048
     Dates: start: 2012
  3. PREDONINE /00016201/ [Suspect]
     Dosage: UNK
     Route: 048
     Dates: start: 201301
  4. CELECOX [Concomitant]
     Dosage: UNK
     Route: 048
     Dates: start: 201301
  5. GLAKAY [Concomitant]
     Dosage: UNK
     Route: 048
     Dates: start: 201301

REACTIONS (1)
  - Diabetes mellitus [Recovered/Resolved]
